FAERS Safety Report 4889339-3 (Version None)
Quarter: 2006Q1

REPORT INFORMATION
  Report Type: 
  Country: None (occurrence: None)
  Receive Date: 20060120
  Receipt Date: 20060120
  Transmission Date: 20060701
  Serious: Yes (Other)
  Sender: FDA-Public Use
  Company Number: None

PATIENT
  Sex: Female
  Weight: 121.6 kg

DRUGS (9)
  1. DAPTOMYCIN    500MG    CUBIST [Suspect]
     Indication: ABSCESS
     Dosage: 480MG   EVERY 24 HOURS   IV BOLUS
     Route: 040
     Dates: start: 20060108, end: 20060117
  2. DAPTOMYCIN    500MG    CUBIST [Suspect]
     Indication: CELLULITIS
     Dosage: 480MG   EVERY 24 HOURS   IV BOLUS
     Route: 040
     Dates: start: 20060108, end: 20060117
  3. AMITRIPTYLINE HCL [Concomitant]
  4. DARVOCET-N 50 [Concomitant]
  5. LASIX [Concomitant]
  6. ZYVOX [Concomitant]
  7. AZACTAM [Concomitant]
  8. NEURONTIN [Concomitant]
  9. NOVOLIN 70/30 [Concomitant]

REACTIONS (4)
  - DYSSTASIA [None]
  - LOCAL SWELLING [None]
  - OEDEMA PERIPHERAL [None]
  - PAIN [None]
